FAERS Safety Report 19589803 (Version 3)
Quarter: 2022Q1

REPORT INFORMATION
  Report Type: Spontaneous
  Country: US (occurrence: US)
  Receive Date: 20210721
  Receipt Date: 20220131
  Transmission Date: 20220424
  Serious: No
  Sender: FDA-Public Use
  Company Number: US-PFIZER INC-2021493830

PATIENT
  Age: 53 Year
  Sex: Female
  Weight: 105.21 kg

DRUGS (2)
  1. XELJANZ XR [Suspect]
     Active Substance: TOFACITINIB CITRATE
     Indication: Rheumatoid arthritis
     Dosage: 11 MG, DAILY
     Route: 048
     Dates: start: 20210115
  2. XELJANZ XR [Suspect]
     Active Substance: TOFACITINIB CITRATE
     Dosage: 11 MG, DAILY(1 TABLET 11MG DAILY)
     Route: 048
     Dates: start: 202106

REACTIONS (3)
  - Breast mass [Unknown]
  - Discouragement [Unknown]
  - Depressed mood [Unknown]

NARRATIVE: CASE EVENT DATE: 20210101
